FAERS Safety Report 7042355-8 (Version None)
Quarter: 2010Q4

REPORT INFORMATION
  Report Type: 
  Country: None (occurrence: None)
  Receive Date: 20101013
  Receipt Date: 20100414
  Transmission Date: 20110411
  Serious: No
  Sender: FDA-Public Use
  Company Number: US-ASTRAZENECA-2010SE16550

PATIENT
  Sex: Female

DRUGS (7)
  1. SYMBICORT [Suspect]
     Indication: BRONCHIAL HYPERREACTIVITY
     Dosage: 640 TOTAL DAILY DOSE TWO TIMES A DAY
     Route: 055
     Dates: start: 20080101, end: 20090101
  2. SYMBICORT [Suspect]
     Indication: ASTHMA
     Dosage: 640 TOTAL DAILY DOSE TWO TIMES A DAY
     Route: 055
     Dates: start: 20080101, end: 20090101
  3. SYMBICORT [Suspect]
     Dosage: 640 TOTAL DAILY DOSE TWO TIMES A DAY
     Route: 055
     Dates: start: 20100401
  4. SYMBICORT [Suspect]
     Dosage: 640 TOTAL DAILY DOSE TWO TIMES A DAY
     Route: 055
     Dates: start: 20100401
  5. MUCINEX [Concomitant]
  6. BENADRYL [Concomitant]
  7. RESCUE INHALER [Concomitant]

REACTIONS (2)
  - COUGH [None]
  - DRUG DOSE OMISSION [None]
